FAERS Safety Report 12315217 (Version 3)
Quarter: 2017Q3

REPORT INFORMATION
  Report Type: Spontaneous
  Country: JP (occurrence: JP)
  Receive Date: 20160428
  Receipt Date: 20170831
  Transmission Date: 20171127
  Serious: Yes (Death, Other)
  Sender: FDA-Public Use
  Company Number: JP-PFIZER INC-2016232326

PATIENT
  Age: 68 Year
  Sex: Female

DRUGS (1)
  1. SILDENAFIL CITRATE. [Suspect]
     Active Substance: SILDENAFIL CITRATE
     Indication: PULMONARY VENO-OCCLUSIVE DISEASE
     Dosage: 20 MG, DAILY

REACTIONS (2)
  - Product use in unapproved indication [Unknown]
  - Pulmonary oedema [Unknown]
